FAERS Safety Report 10241547 (Version 2)
Quarter: 2014Q4

REPORT INFORMATION
  Report Type: Spontaneous
  Country: US (occurrence: None)
  Receive Date: 20140613
  Receipt Date: 20141119
  Transmission Date: 20150528
  Serious: Yes (Death, Hospitalization)
  Sender: FDA-Public Use
  Company Number: UNT-2014-001663

PATIENT
  Age: 72 Year
  Sex: Female
  Weight: 75.3 kg

DRUGS (3)
  1. TYVASO [Suspect]
     Active Substance: TREPROSTINIL
     Indication: PULMONARY ARTERIAL HYPERTENSION
     Dosage: 18-54 MCG, QID, INHALATION
     Route: 055
     Dates: start: 20140214
  2. RIOCIGUAT (RIOCIGUAT) [Concomitant]
  3. WARFARIN (WARFARIN) [Concomitant]
     Active Substance: WARFARIN

REACTIONS (4)
  - Death [None]
  - Atrial fibrillation [None]
  - Dyspnoea [None]
  - Ventricular fibrillation [None]

NARRATIVE: CASE EVENT DATE: 20140522
